FAERS Safety Report 23371873 (Version 3)
Quarter: 2024Q1

REPORT INFORMATION
  Report Type: Report from Study
  Country: DE (occurrence: DE)
  Receive Date: 20240105
  Receipt Date: 20240201
  Transmission Date: 20240410
  Serious: Yes (Life-Threatening)
  Sender: FDA-Public Use
  Company Number: DE-KYOWAKIRIN-2023KK019797

PATIENT

DRUGS (11)
  1. MOGAMULIZUMAB [Suspect]
     Active Substance: MOGAMULIZUMAB
     Indication: Cutaneous T-cell lymphoma stage IV
     Dosage: 75 MG, 1 MG/KG (CYCLE 1 DAY 1)
     Route: 065
     Dates: start: 20231115
  2. MOGAMULIZUMAB [Suspect]
     Active Substance: MOGAMULIZUMAB
     Dosage: 75 MG, 1 MG/KG (CYCLE 1 DAY 8)
     Route: 065
     Dates: start: 20231123
  3. MOGAMULIZUMAB [Suspect]
     Active Substance: MOGAMULIZUMAB
     Dosage: 75 MG,1 MG/KG (CYCLE 1 DAY 15)
     Route: 065
     Dates: start: 20231130
  4. MOGAMULIZUMAB [Suspect]
     Active Substance: MOGAMULIZUMAB
     Dosage: 76.9 MG, 1 MG/KG (CYCLE 2 DAY 15)
     Route: 065
     Dates: start: 20231222
  5. MOGAMULIZUMAB [Suspect]
     Active Substance: MOGAMULIZUMAB
     Dosage: UNK,1 MG/KG (CYCLE 3 DAY 1)
     Route: 065
     Dates: start: 20231229
  6. MOGAMULIZUMAB [Suspect]
     Active Substance: MOGAMULIZUMAB
     Dosage: 76 MG,1 MG/KG (CYCLE 3 DAY 15)
     Route: 065
     Dates: start: 20240112
  7. MOGAMULIZUMAB [Suspect]
     Active Substance: MOGAMULIZUMAB
     Dosage: 74 MG, 1 MG/KG (CYCLE 4 DAY 1)
     Route: 065
     Dates: start: 20240126
  8. LEVOTHYROXINE SODIUM\POTASSIUM IODIDE [Concomitant]
     Active Substance: LEVOTHYROXINE SODIUM\POTASSIUM IODIDE
     Indication: Product used for unknown indication
     Dosage: 75 UG, QD
     Route: 065
     Dates: start: 20190501
  9. CLOBETASOL [Concomitant]
     Active Substance: CLOBETASOL
     Indication: Cutaneous T-cell lymphoma
     Dosage: UNK, BID
     Route: 065
     Dates: start: 20231115
  10. PREDNICARBATE [Concomitant]
     Active Substance: PREDNICARBATE
     Indication: Cutaneous T-cell lymphoma
     Dosage: UNK, QD
     Route: 065
     Dates: start: 20231115
  11. ENOXAPARIN [Concomitant]
     Active Substance: ENOXAPARIN
     Indication: Prophylaxis
     Dosage: 0.4 ML, QD
     Route: 065
     Dates: start: 20231115, end: 20231116

REACTIONS (2)
  - Lymphocyte count decreased [Recovered/Resolved]
  - Lymphocyte count decreased [Recovered/Resolved]

NARRATIVE: CASE EVENT DATE: 20231123
